FAERS Safety Report 5493735-3 (Version None)
Quarter: 2007Q4

REPORT INFORMATION
  Report Type: 
  Country: None (occurrence: None)
  Receive Date: 20071015
  Receipt Date: 20070615
  Transmission Date: 20080405
  Serious: No
  Sender: FDA-Public Use
  Company Number: 2007SP002273

PATIENT
  Age: 52 Year
  Sex: Female
  Weight: 68.0396 kg

DRUGS (4)
  1. LUNESTA [Suspect]
     Indication: INSOMNIA
     Dosage: 1.5 MG; HS; ORAL, 3 MG; HS; ORAL
     Dates: start: 20070612, end: 20070612
  2. LUNESTA [Suspect]
     Indication: INSOMNIA
     Dosage: 1.5 MG; HS; ORAL, 3 MG; HS; ORAL
     Dates: start: 20070613
  3. AMBIEN [Suspect]
     Dosage: 12.5 MG; ORAL, 6.25 MG; ORAL
     Route: 048
     Dates: start: 20060101, end: 20070101
  4. AMBIEN [Suspect]
     Dosage: 12.5 MG; ORAL, 6.25 MG; ORAL
     Route: 048
     Dates: start: 20070612, end: 20070601

REACTIONS (3)
  - ABNORMAL DREAMS [None]
  - DRUG INEFFECTIVE [None]
  - POOR QUALITY SLEEP [None]
